FAERS Safety Report 19721960 (Version 3)
Quarter: 2021Q4

REPORT INFORMATION
  Report Type: Report from Study
  Country: PA (occurrence: PA)
  Receive Date: 20210818
  Receipt Date: 20211006
  Transmission Date: 20220303
  Serious: Yes (Other)
  Sender: FDA-Public Use
  Company Number: NVSC2021PA184373

PATIENT
  Sex: Female

DRUGS (1)
  1. GILENYA [Suspect]
     Active Substance: FINGOLIMOD HYDROCHLORIDE
     Indication: Multiple sclerosis
     Dosage: 0.5 MG, QD
     Route: 048
     Dates: start: 20210719

REACTIONS (23)
  - SARS-CoV-2 test positive [Unknown]
  - Anosmia [Unknown]
  - Ageusia [Unknown]
  - Malaise [Unknown]
  - Illness [Unknown]
  - Nasal congestion [Unknown]
  - Musculoskeletal discomfort [Not Recovered/Not Resolved]
  - Peripheral coldness [Not Recovered/Not Resolved]
  - Peripheral swelling [Unknown]
  - Fluid retention [Unknown]
  - Photophobia [Not Recovered/Not Resolved]
  - Diabetes mellitus [Unknown]
  - Chills [Not Recovered/Not Resolved]
  - Cough [Not Recovered/Not Resolved]
  - Headache [Not Recovered/Not Resolved]
  - Hypertension [Not Recovered/Not Resolved]
  - Nausea [Not Recovered/Not Resolved]
  - Tremor [Not Recovered/Not Resolved]
  - Feeling hot [Unknown]
  - Constipation [Unknown]
  - Weight increased [Unknown]
  - Skin discolouration [Unknown]
  - Abdominal discomfort [Unknown]
